FAERS Safety Report 20776771 (Version 1)
Quarter: 2022Q2

REPORT INFORMATION
  Report Type: Spontaneous
  Country: US (occurrence: US)
  Receive Date: 20220502
  Receipt Date: 20220502
  Transmission Date: 20220720
  Serious: No
  Sender: FDA-Public Use
  Company Number: US-PFIZER INC-2019514436

PATIENT
  Age: 51 Year
  Sex: Female

DRUGS (2)
  1. LYRICA [Suspect]
     Active Substance: PREGABALIN
     Indication: Fibromyalgia
     Dosage: 225 MG, 1X/DAY (TAKE ONE CAPSULE PO (ORAL) QHS (EVERY NIGHT AT BEDTIME))
     Route: 048
  2. LYRICA [Suspect]
     Active Substance: PREGABALIN
     Indication: Pain
     Dosage: 150 MG, 1X/DAY (LYRICA 150 MG CAPSULE TAKE ONE PO (ORAL) QAM (EVERY MORNING))
     Route: 048

REACTIONS (2)
  - Feeling abnormal [Unknown]
  - Circumstance or information capable of leading to medication error [Unknown]
